FAERS Safety Report 15566013 (Version 1)
Quarter: 2018Q4

REPORT INFORMATION
  Report Type: Spontaneous
  Country: HR (occurrence: HR)
  Receive Date: 20181030
  Receipt Date: 20181030
  Transmission Date: 20190205
  Serious: Yes (Other)
  Sender: FDA-Public Use
  Company Number: HR-PFIZER INC-2018439561

PATIENT
  Sex: Female

DRUGS (3)
  1. CARVELOL [Suspect]
     Active Substance: CARVEDILOL
     Dosage: 150 MG, 1X/DAY
     Route: 048
     Dates: start: 20180825, end: 20180825
  2. XANAX XR [Suspect]
     Active Substance: ALPRAZOLAM
     Dosage: 40 MG, 1X/DAY
     Route: 048
     Dates: start: 20180825, end: 20180825
  3. LAAVEN HL [Suspect]
     Active Substance: HYDROCHLOROTHIAZIDE\LISINOPRIL
     Dosage: 20 DF, 1X/DAY (DF = 600 MG LISINOPRIL + 250 MG HYDROCHLOROTHIAZIDE)
     Route: 048
     Dates: start: 20180825, end: 20180825

REACTIONS (4)
  - Somnolence [Unknown]
  - Suicide attempt [Unknown]
  - Blood pressure decreased [Unknown]
  - Intentional overdose [Unknown]

NARRATIVE: CASE EVENT DATE: 20180825
